FAERS Safety Report 21175832 (Version 3)
Quarter: 2023Q1

REPORT INFORMATION
  Report Type: Report from Study
  Country: GB (occurrence: GB)
  Receive Date: 20220805
  Receipt Date: 20230127
  Transmission Date: 20230417
  Serious: Yes (Hospitalization, Other)
  Sender: FDA-Public Use
  Company Number: GB-ABBVIE-22K-167-4492494-00

PATIENT
  Age: 80 Year
  Sex: Male

DRUGS (1)
  1. HUMIRA [Suspect]
     Active Substance: ADALIMUMAB
     Indication: Rheumatoid arthritis
     Route: 058
     Dates: end: 2022

REACTIONS (5)
  - Complication associated with device [Unknown]
  - Malaise [Unknown]
  - Cerebrovascular accident [Unknown]
  - Pneumonia [Unknown]
  - Aphasia [Unknown]

NARRATIVE: CASE EVENT DATE: 20220101
